FAERS Safety Report 6115245-2 (Version None)
Quarter: 2009Q1

REPORT INFORMATION
  Report Type: 
  Country: None (occurrence: None)
  Receive Date: 20090313
  Receipt Date: 20090304
  Transmission Date: 20090719
  Serious: Yes (Other)
  Sender: FDA-Public Use
  Company Number: US-MERCK-0903USA00353

PATIENT
  Age: 76 Year
  Sex: Female

DRUGS (4)
  1. ZOCOR [Suspect]
     Route: 048
  2. ZOCOR [Suspect]
     Route: 048
  3. GLIPIZIDE [Concomitant]
     Route: 065
  4. ESTROGENS (UNSPECIFIED) [Concomitant]
     Route: 065

REACTIONS (5)
  - ASTHENIA [None]
  - BLOOD CREATINE PHOSPHOKINASE INCREASED [None]
  - FACIAL PARESIS [None]
  - GAIT DISTURBANCE [None]
  - MYALGIA [None]
